FAERS Safety Report 10244071 (Version 1)
Quarter: 2014Q2

REPORT INFORMATION
  Report Type: Spontaneous
  Country: SK (occurrence: SK)
  Receive Date: 20140618
  Receipt Date: 20140618
  Transmission Date: 20141212
  Serious: Yes (Hospitalization)
  Sender: FDA-Public Use
  Company Number: SK-PFIZER INC-2014162447

PATIENT
  Sex: Female

DRUGS (1)
  1. SUNITINIB MALATE [Suspect]

REACTIONS (3)
  - Acid base balance abnormal [Unknown]
  - Diarrhoea [Unknown]
  - Cardiac failure [Unknown]
